FAERS Safety Report 19935884 (Version 1)
Quarter: 2021Q4

REPORT INFORMATION
  Report Type: Spontaneous
  Country: ES (occurrence: ES)
  Receive Date: 20211008
  Receipt Date: 20211008
  Transmission Date: 20220304
  Serious: Yes (Hospitalization)
  Sender: FDA-Public Use
  Company Number: None

PATIENT
  Age: 55 Year
  Sex: Female

DRUGS (3)
  1. PEMETREXED [Suspect]
     Active Substance: PEMETREXED
     Indication: Lung neoplasm malignant
     Dosage: 940.0 MG C / 21 DAYS
     Route: 042
     Dates: start: 20200602, end: 20200602
  2. TRYPTIZOL 25 mg COMPRIMIDOS RECUBIERTOS CON PELICULA, 60 comprimidos [Concomitant]
     Indication: Headache
     Dosage: 25.0 MG C / 24 H NOC
     Route: 048
     Dates: start: 20190820
  3. ATROVENT [Concomitant]
     Active Substance: IPRATROPIUM BROMIDE
     Indication: Lung neoplasm malignant
     Dosage: 40.0 MCG C / 8 HOURS
     Route: 050
     Dates: start: 20170117

REACTIONS (1)
  - Pancytopenia [Recovered/Resolved]

NARRATIVE: CASE EVENT DATE: 20200612
